FAERS Safety Report 5989057-4 (Version None)
Quarter: 2008Q4

REPORT INFORMATION
  Report Type: 
  Country: None (occurrence: None)
  Receive Date: 20081210
  Receipt Date: 20080108
  Transmission Date: 20090506
  Serious: No
  Sender: FDA-Public Use
  Company Number: US-AMGEN-KDL259631

PATIENT
  Sex: Female

DRUGS (7)
  1. ENBREL [Suspect]
     Indication: RHEUMATOID ARTHRITIS
     Route: 058
     Dates: start: 20071219
  2. METHOTREXATE [Concomitant]
  3. PLAQUENIL [Concomitant]
  4. XANAX [Concomitant]
  5. FOLIC ACID [Concomitant]
  6. NEXIUM [Concomitant]
  7. MOTRIN [Concomitant]

REACTIONS (1)
  - INJECTION SITE PRURITUS [None]
